FAERS Safety Report 10134180 (Version 1)
Quarter: 2014Q2

REPORT INFORMATION
  Report Type: Spontaneous
  Country: FR (occurrence: FR)
  Receive Date: 20140428
  Receipt Date: 20140428
  Transmission Date: 20141212
  Serious: Yes (Hospitalization, Other)
  Sender: FDA-Public Use
  Company Number: FR-TEVA-478087ISR

PATIENT
  Age: 57 Year
  Sex: Female

DRUGS (13)
  1. ETOPOSIDE TEVA [Suspect]
     Indication: LYMPHOMA
     Route: 041
     Dates: start: 20140312, end: 20140314
  2. IFOSFAMIDE [Suspect]
     Indication: LYMPHOMA
     Route: 042
     Dates: start: 20140313, end: 20140314
  3. UROMITEXAN 1G/10 ML [Suspect]
     Route: 042
     Dates: start: 20140313, end: 20140314
  4. CARBOPLATINE HOSPIRA [Suspect]
     Indication: LYMPHOMA
     Route: 041
     Dates: start: 20140313
  5. ZOPHREN 8MG/4ML [Suspect]
     Indication: PREMEDICATION
     Route: 042
     Dates: start: 20140312, end: 20140314
  6. MABTHERA [Concomitant]
     Indication: LYMPHOMA
     Route: 041
  7. ZELITREX [Concomitant]
  8. INEXIUM [Concomitant]
  9. ORACILLINE [Concomitant]
  10. BACTRIM FORTE [Concomitant]
  11. KEPPRA [Concomitant]
     Dosage: LONG STANDING TREATMENT
  12. SOLUMEDROL [Concomitant]
  13. PLITICAN [Concomitant]
     Indication: PREMEDICATION

REACTIONS (4)
  - Somnolence [Recovered/Resolved]
  - Depressed level of consciousness [Recovered/Resolved]
  - Perseveration [Recovered/Resolved]
  - Neurotoxicity [Recovered/Resolved]
